FAERS Safety Report 22331908 (Version 1)
Quarter: 2023Q2

REPORT INFORMATION
  Report Type: Spontaneous
  Country: CA (occurrence: CA)
  Receive Date: 20230517
  Receipt Date: 20230517
  Transmission Date: 20230721
  Serious: Yes (Other)
  Sender: FDA-Public Use
  Company Number: CA-PFIZER INC-202201276690

PATIENT
  Age: 55 Year
  Sex: Female
  Weight: 109.75 kg

DRUGS (8)
  1. RUXIENCE [Suspect]
     Active Substance: RITUXIMAB-PVVR
     Indication: Anti-neutrophil cytoplasmic antibody positive vasculitis
     Dosage: 1000 MG, DAY 1 AND DAY 15
     Route: 042
     Dates: start: 20230103
  2. RUXIENCE [Suspect]
     Active Substance: RITUXIMAB-PVVR
     Indication: Microscopic polyangiitis
  3. ATIVAN [Concomitant]
     Active Substance: LORAZEPAM
     Indication: Nervousness
     Dosage: UNK
     Dates: start: 20230102
  4. CIPRALEX [Concomitant]
     Active Substance: ESCITALOPRAM OXALATE
     Indication: Nervousness
     Dosage: UNK
     Dates: start: 20230102
  5. PERINDOPRIL ARGININE [Concomitant]
     Active Substance: PERINDOPRIL ARGININE
     Dosage: 1 DF
     Route: 065
  6. METHOTREXATE [Concomitant]
     Active Substance: METHOTREXATE
     Dosage: 20 MG, WEEKLY
     Route: 058
     Dates: start: 202205
  7. NORVASC [Concomitant]
     Active Substance: AMLODIPINE BESYLATE
     Dosage: 1 DF
     Route: 065
  8. PREDNISONE [Concomitant]
     Active Substance: PREDNISONE
     Dosage: 20 MG, FREQUENCY UNKNOWN
     Route: 065
     Dates: start: 202205

REACTIONS (22)
  - Wheezing [Not Recovered/Not Resolved]
  - Dyspnoea [Unknown]
  - Dyspnoea exertional [Unknown]
  - Fatigue [Unknown]
  - Dry throat [Unknown]
  - Weight increased [Unknown]
  - Confusional state [Unknown]
  - Arthralgia [Unknown]
  - Joint swelling [Unknown]
  - Rash [Unknown]
  - Skin lesion [Unknown]
  - Blister [Unknown]
  - Skin exfoliation [Unknown]
  - Nausea [Unknown]
  - Nasopharyngitis [Unknown]
  - Fatigue [Unknown]
  - Eye irritation [Unknown]
  - Lacrimation increased [Unknown]
  - Cough [Unknown]
  - Sinusitis [Unknown]
  - Off label use [Unknown]
  - Off label use [Unknown]

NARRATIVE: CASE EVENT DATE: 20230103
